FAERS Safety Report 26145735 (Version 1)
Quarter: 2025Q4

REPORT INFORMATION
  Report Type: Report from Study
  Country: US (occurrence: US)
  Receive Date: 20251211
  Receipt Date: 20251211
  Transmission Date: 20260118
  Serious: Yes (Other)
  Sender: ALEXION PHARMACEUTICALS
  Company Number: US-ASTRAZENECA-202512NAM004770US

PATIENT
  Sex: Female

DRUGS (2)
  1. OLAPARIB [Suspect]
     Active Substance: OLAPARIB
     Indication: Breast cancer
     Dosage: 300 MILLIGRAM, BID
     Dates: start: 202505
  2. OLAPARIB [Suspect]
     Active Substance: OLAPARIB
     Dosage: 150 MILLIGRAM, BID

REACTIONS (6)
  - Hyperthyroidism [Unknown]
  - Diarrhoea [Recovered/Resolved]
  - Platelet count decreased [Unknown]
  - Dehydration [Unknown]
  - Therapy change [Unknown]
  - Vitamin D deficiency [Unknown]
